FAERS Safety Report 25861681 (Version 1)
Quarter: 2025Q3

REPORT INFORMATION
  Report Type: Report from Study
  Country: GB (occurrence: GB)
  Receive Date: 20250930
  Receipt Date: 20250930
  Transmission Date: 20251021
  Serious: Yes (Hospitalization)
  Sender: TEVA
  Company Number: GB-TEVA-VS-3376172

PATIENT
  Age: 65 Year
  Sex: Female

DRUGS (1)
  1. TERIPARATIDE [Suspect]
     Active Substance: TERIPARATIDE
     Indication: Osteoporosis
     Route: 058
     Dates: start: 20250820, end: 20250911

REACTIONS (4)
  - Hypoaesthesia [Unknown]
  - Asthenia [Unknown]
  - Vertigo [Unknown]
  - Migraine [Unknown]

NARRATIVE: CASE EVENT DATE: 20250101
